FAERS Safety Report 22806556 (Version 2)
Quarter: 2024Q2

REPORT INFORMATION
  Report Type: Report from Study
  Country: CA (occurrence: CA)
  Receive Date: 20230810
  Receipt Date: 20240506
  Transmission Date: 20240715
  Serious: Yes (Other)
  Sender: FDA-Public Use
  Company Number: CA-ABBVIE-5360856

PATIENT
  Sex: Male

DRUGS (1)
  1. LUPRON [Suspect]
     Active Substance: LEUPROLIDE ACETATE
     Indication: Prostate cancer
     Route: 030
     Dates: start: 20170223

REACTIONS (3)
  - Patella fracture [Recovering/Resolving]
  - Fall [Recovering/Resolving]
  - Walking aid user [Recovering/Resolving]

NARRATIVE: CASE EVENT DATE: 20230101
